FAERS Safety Report 9798234 (Version 1)
Quarter: 2014Q1

REPORT INFORMATION
  Report Type: Spontaneous
  Country: US (occurrence: None)
  Receive Date: 20140103
  Receipt Date: 20140103
  Transmission Date: 20141002
  Serious: Yes (Life-Threatening, Hospitalization, Other)
  Sender: FDA-Public Use
  Company Number: None

PATIENT
  Age: 2 Month
  Sex: Male
  Weight: 4.54 kg

DRUGS (1)
  1. FLUCONAZOLE [Suspect]
     Indication: CANDIDA INFECTION
     Route: 048
     Dates: start: 20131016

REACTIONS (6)
  - Bile duct obstruction [None]
  - Liver injury [None]
  - Jaundice [None]
  - Weight gain poor [None]
  - Vitamin D deficiency [None]
  - Appendicectomy [None]
